FAERS Safety Report 6071549-3 (Version None)
Quarter: 2009Q1

REPORT INFORMATION
  Report Type: 
  Country: None (occurrence: None)
  Receive Date: 20090205
  Receipt Date: 20090205
  Transmission Date: 20090719
  Serious: Yes (Other)
  Sender: FDA-Public Use
  Company Number: None

PATIENT

DRUGS (8)
  1. CELEXA [Suspect]
     Dosage: 40MG QHS PO
     Route: 048
  2. XANAX [Suspect]
     Dosage: 0.25 MG QHS PO
     Route: 048
  3. LEXAPRO [Concomitant]
  4. PAXIL [Concomitant]
  5. ZOLOFT [Concomitant]
  6. PROZAC [Concomitant]
  7. . [Concomitant]
  8. . [Concomitant]

REACTIONS (3)
  - LYMPHOMA [None]
  - PRODUCT QUALITY ISSUE [None]
  - RASH [None]
